FAERS Safety Report 14861666 (Version 3)
Quarter: 2018Q2

REPORT INFORMATION
  Report Type: Spontaneous
  Country: US (occurrence: US)
  Receive Date: 20180508
  Receipt Date: 20180615
  Transmission Date: 20180711
  Serious: No
  Sender: FDA-Public Use
  Company Number: US-VIFOR (INTERNATIONAL) INC.-VIT-2017-14162

PATIENT
  Sex: Female

DRUGS (13)
  1. PREMARIN [Concomitant]
     Active Substance: ESTROGENS, CONJUGATED
  2. COLECALCIFEROL [Concomitant]
     Active Substance: CHOLECALCIFEROL
  3. TOPROL XL [Concomitant]
     Active Substance: METOPROLOL SUCCINATE
  4. IRBESARTAN. [Concomitant]
     Active Substance: IRBESARTAN
  5. SPIRONOLACTONE. [Concomitant]
     Active Substance: SPIRONOLACTONE
  6. LORATADINE. [Concomitant]
     Active Substance: LORATADINE
  7. CALCIUM CARBONATE. [Concomitant]
     Active Substance: CALCIUM CARBONATE
  8. VELTASSA [Suspect]
     Active Substance: PATIROMER
     Indication: HYPERKALAEMIA
     Route: 048
     Dates: start: 20171108
  9. LORAZEPAM. [Concomitant]
     Active Substance: LORAZEPAM
  10. ZANTAC 75 [Concomitant]
     Active Substance: RANITIDINE HYDROCHLORIDE
  11. TORASEMIDE [Concomitant]
     Active Substance: TORSEMIDE
  12. CRESTOR [Concomitant]
     Active Substance: ROSUVASTATIN CALCIUM
  13. MULTIVITAMIN ADULT [Concomitant]

REACTIONS (2)
  - Diarrhoea [Not Recovered/Not Resolved]
  - Constipation [Unknown]
